FAERS Safety Report 5066870-1 (Version None)
Quarter: 2006Q3

REPORT INFORMATION
  Report Type: 
  Country: None (occurrence: None)
  Receive Date: 20060728
  Receipt Date: 20060713
  Transmission Date: 20061208
  Serious: Yes (Other)
  Sender: FDA-Public Use
  Company Number: 2841

PATIENT
  Age: 16 Year
  Sex: Female

DRUGS (1)
  1. AMNESTEEM [Suspect]
     Indication: ACNE
     Dosage: 40 MG QD PO
     Route: 048
     Dates: start: 20060329, end: 20060426

REACTIONS (2)
  - ARRHYTHMIA [None]
  - SYNCOPE [None]
